FAERS Safety Report 12497301 (Version 2)
Quarter: 2016Q3

REPORT INFORMATION
  Report Type: Spontaneous
  Country: JP (occurrence: JP)
  Receive Date: 20160624
  Receipt Date: 20160705
  Transmission Date: 20161109
  Serious: Yes (Other)
  Sender: FDA-Public Use
  Company Number: JP-PFIZER INC-2016186442

PATIENT
  Age: 63 Year
  Sex: Male
  Weight: 62.5 kg

DRUGS (5)
  1. MEROPENEM. [Concomitant]
     Active Substance: MEROPENEM
     Indication: LIVER ABSCESS
     Dosage: UNK
  2. PAZUFLOXACIN [Concomitant]
     Active Substance: PAZUFLOXACIN
     Indication: LIVER ABSCESS
     Dosage: UNK
  3. CEFAZOLIN [Concomitant]
     Active Substance: CEFAZOLIN
     Indication: LIVER ABSCESS
     Dosage: UNK
  4. CEFTRIAXONE SODIUM. [Suspect]
     Active Substance: CEFTRIAXONE SODIUM
     Dosage: 4 G, DAILY
  5. CEFTRIAXONE SODIUM. [Suspect]
     Active Substance: CEFTRIAXONE SODIUM
     Indication: LIVER ABSCESS
     Dosage: 3 G, DAILY

REACTIONS (1)
  - Cholelithiasis [Recovered/Resolved]
